FAERS Safety Report 5056516-0 (Version None)
Quarter: 2006Q3

REPORT INFORMATION
  Report Type: 
  Country: None (occurrence: None)
  Receive Date: 20060720
  Receipt Date: 20060710
  Transmission Date: 20061208
  Serious: Yes (Hospitalization)
  Sender: FDA-Public Use
  Company Number: PHRM2006FR02036

PATIENT
  Age: 83 Year
  Sex: Male

DRUGS (3)
  1. ALDACTONE [Suspect]
     Dosage: 25 MG, BID
     Route: 048
     Dates: end: 20060205
  2. SECTRAL [Suspect]
     Dosage: 100 MG, QD
     Route: 048
     Dates: end: 20060205
  3. TAREG [Suspect]
     Indication: HYPERTENSION
     Dosage: 80 MG, QD
     Route: 048
     Dates: end: 20060205

REACTIONS (13)
  - BLOOD CREATININE INCREASED [None]
  - BLOOD UREA INCREASED [None]
  - BRADYCARDIA [None]
  - DEHYDRATION [None]
  - DIARRHOEA [None]
  - DYSPNOEA [None]
  - HYPERKALAEMIA [None]
  - LOSS OF CONSCIOUSNESS [None]
  - RENAL CYST [None]
  - RENAL FAILURE ACUTE [None]
  - SINOATRIAL BLOCK [None]
  - SYNCOPE [None]
  - VOMITING [None]
